FAERS Safety Report 20928709 (Version 1)
Quarter: 2022Q2

REPORT INFORMATION
  Report Type: Spontaneous
  Country: US (occurrence: US)
  Receive Date: 20220607
  Receipt Date: 20220607
  Transmission Date: 20220720
  Serious: No
  Sender: FDA-Public Use
  Company Number: US-VIIV HEALTHCARE LIMITED-US2022AMR085091

PATIENT
  Sex: Male

DRUGS (2)
  1. RILPIVIRINE [Suspect]
     Active Substance: RILPIVIRINE
     Indication: HIV infection
     Dosage: UNK UNK, Z ((400/600 MG ONCE MONTHLY))
     Route: 065
     Dates: start: 202112
  2. CABOTEGRAVIR [Suspect]
     Active Substance: CABOTEGRAVIR
     Indication: HIV infection
     Dosage: UNK UNK, Z ((400/600 MG ONCE MONTHLY))
     Route: 065
     Dates: start: 202112

REACTIONS (3)
  - Blood HIV RNA increased [Unknown]
  - Anxiety [Unknown]
  - Injection site pain [Unknown]

NARRATIVE: CASE EVENT DATE: 20220101
